FAERS Safety Report 14984312 (Version 2)
Quarter: 2019Q3

REPORT INFORMATION
  Report Type: Report from Study
  Country: FR (occurrence: FR)
  Receive Date: 20180607
  Receipt Date: 20190808
  Transmission Date: 20191004
  Serious: Yes (Death, Other)
  Sender: FDA-Public Use
  Company Number: FR-JAZZ-2018-FR-004404

PATIENT

DRUGS (5)
  1. ALBUMINE [Suspect]
     Active Substance: ALBUMIN HUMAN
     Indication: VENOOCCLUSIVE LIVER DISEASE
  2. DELURSAN [Suspect]
     Active Substance: URSODIOL
     Indication: VENOOCCLUSIVE LIVER DISEASE
  3. DEFITELIO [Suspect]
     Active Substance: DEFIBROTIDE SODIUM
     Dosage: 24.3 MG/KG/DAY
     Route: 065
     Dates: end: 20161215
  4. ACLOTINE [Concomitant]
     Active Substance: ANTITHROMBIN III HUMAN
     Indication: PRODUCT USED FOR UNKNOWN INDICATION
     Dosage: 45 %, DURING 2 DAYS
  5. DEFITELIO [Suspect]
     Active Substance: DEFIBROTIDE SODIUM
     Indication: VENOOCCLUSIVE LIVER DISEASE
     Dosage: 24 MG/KG/DAY
     Route: 065
     Dates: start: 20161206

REACTIONS (6)
  - Renal failure [Fatal]
  - Respiratory failure [Fatal]
  - Underdose [Unknown]
  - Incorrect product administration duration [Unknown]
  - Microangiopathy [Unknown]
  - Pseudomonas infection [Fatal]

NARRATIVE: CASE EVENT DATE: 20161206
